FAERS Safety Report 7754440-3 (Version None)
Quarter: 2011Q3

REPORT INFORMATION
  Report Type: 
  Country: None (occurrence: None)
  Receive Date: 20110915
  Receipt Date: 20110914
  Transmission Date: 20111222
  Serious: Yes (Death)
  Sender: FDA-Public Use
  Company Number: VE-PFIZER INC-2011203043

PATIENT
  Age: 62 Year
  Sex: Male

DRUGS (7)
  1. DIGOXIN [Concomitant]
     Indication: CARDIAC DISORDER
     Dosage: 0.25 MG, 1X/DAY
     Route: 048
     Dates: end: 20090101
  2. ASPIRIN [Concomitant]
     Indication: CARDIAC DISORDER
     Dosage: 100 MG, 1X/DAY
     Route: 048
     Dates: end: 20100101
  3. ALTACE [Concomitant]
     Indication: CARDIAC DISORDER
     Dosage: 2.5 MG, 1X/DAY
     Route: 048
     Dates: end: 20090101
  4. LANTUS [Concomitant]
     Indication: DIABETES MELLITUS
     Dosage: 100 IU/ML, 3X/DAY
     Route: 058
  5. ISOSORBIDE MONONITRATE [Concomitant]
     Dosage: 10 MG, 2X/DAY
     Route: 048
  6. PLAVIX [Concomitant]
     Indication: HYPERTENSION
     Dosage: 75 MG, 1X/DAY
     Route: 048
  7. LIPITOR [Suspect]
     Indication: HYPERCHOLESTEROLAEMIA
     Dosage: 80 MG, 1X/DAY
     Route: 048
     Dates: start: 20100101, end: 20110101

REACTIONS (1)
  - RESPIRATORY ARREST [None]
